FAERS Safety Report 8452464-4 (Version None)
Quarter: 2012Q2

REPORT INFORMATION
  Report Type: 
  Country: None (occurrence: None)
  Receive Date: 20120620
  Receipt Date: 20120615
  Transmission Date: 20120825
  Serious: Yes (Life-Threatening, Hospitalization)
  Sender: FDA-Public Use
  Company Number: JP-ASTRAZENECA-2012SE39125

PATIENT
  Age: 60 Year
  Sex: Male

DRUGS (6)
  1. FELODIPINE [Suspect]
     Indication: HYPERTENSION
     Dosage: 140 MG
     Route: 048
     Dates: start: 20120611, end: 20120611
  2. TOLEDOMIN [Concomitant]
     Route: 065
  3. THREE KINDS OF SLEEPING INDUCING DRUGS [Concomitant]
     Route: 065
  4. LEXOTAN [Concomitant]
     Route: 065
  5. ANTIDIABETIC DRUG [Concomitant]
     Route: 065
  6. LONASEN [Concomitant]
     Route: 065

REACTIONS (3)
  - OVERDOSE [None]
  - COMA [None]
  - HYPOTENSION [None]
